FAERS Safety Report 9671661 (Version 1)
Quarter: 2013Q4

REPORT INFORMATION
  Report Type: Spontaneous
  Country: US (occurrence: US)
  Receive Date: 20131106
  Receipt Date: 20131106
  Transmission Date: 20140711
  Serious: Yes (Other)
  Sender: FDA-Public Use
  Company Number: US-PFIZER INC-2013315800

PATIENT
  Age: 52 Year
  Sex: Female
  Weight: 63.49 kg

DRUGS (4)
  1. ZOLOFT [Suspect]
     Indication: DEPRESSION
     Dosage: 50 MG, UNK
     Route: 048
     Dates: start: 2013, end: 2013
  2. ZOLOFT [Suspect]
     Dosage: 100 MG, UNK
     Route: 048
     Dates: start: 2013, end: 2013
  3. ZOLOFT [Suspect]
     Dosage: 75 MG (BY TAKING ONE AND A HALF TABLET OF 50MG), 1X/DAY
     Route: 048
     Dates: start: 2013, end: 2013
  4. ZOLOFT [Suspect]
     Dosage: 50 MG, 1X/DAY
     Route: 048
     Dates: start: 2013

REACTIONS (2)
  - Pharyngeal injury [Unknown]
  - Pharyngeal disorder [Unknown]
